FAERS Safety Report 24967941 (Version 1)
Quarter: 2025Q1

REPORT INFORMATION
  Report Type: Spontaneous
  Country: US (occurrence: US)
  Receive Date: 20250214
  Receipt Date: 20250214
  Transmission Date: 20250409
  Serious: No
  Sender: Unknown Manufacturer
  Company Number: US-MTPC-MTPA2025-0002893

PATIENT
  Sex: Female

DRUGS (2)
  1. RADICAVA ORS [Suspect]
     Active Substance: EDARAVONE
     Indication: Amyotrophic lateral sclerosis
     Route: 065
  2. RADICAVA ORS [Suspect]
     Active Substance: EDARAVONE
     Indication: Amyotrophic lateral sclerosis
     Route: 065

REACTIONS (5)
  - Disease progression [Not Recovered/Not Resolved]
  - Gait disturbance [Not Recovered/Not Resolved]
  - Muscular weakness [Not Recovered/Not Resolved]
  - Movement disorder [Not Recovered/Not Resolved]
  - Drug ineffective [Not Recovered/Not Resolved]
